FAERS Safety Report 13483282 (Version 3)
Quarter: 2017Q3

REPORT INFORMATION
  Report Type: Spontaneous
  Country: US (occurrence: US)
  Receive Date: 20170426
  Receipt Date: 20170703
  Transmission Date: 20171127
  Serious: Yes (Hospitalization, Other)
  Sender: FDA-Public Use
  Company Number: US-AMGEN-USASP2017062314

PATIENT
  Sex: Female

DRUGS (3)
  1. CETIRIZINE [Concomitant]
     Active Substance: CETIRIZINE HYDROCHLORIDE
     Dosage: UNK
  2. IBUPROFEN. [Suspect]
     Active Substance: IBUPROFEN
     Indication: PRODUCT USED FOR UNKNOWN INDICATION
     Dosage: UNK
     Route: 065
  3. ENBREL [Suspect]
     Active Substance: ETANERCEPT
     Indication: RHEUMATOID ARTHRITIS
     Dosage: UNK
     Route: 065

REACTIONS (11)
  - Pneumonia [Recovered/Resolved]
  - Procedural complication [Unknown]
  - Pulmonary oedema [Not Recovered/Not Resolved]
  - Drug effect incomplete [Unknown]
  - Osteoarthritis [Unknown]
  - Pulmonary mass [Recovered/Resolved]
  - Emphysema [Not Recovered/Not Resolved]
  - Urinary tract disorder [Unknown]
  - Rheumatoid arthritis [Unknown]
  - Hypersensitivity [Not Recovered/Not Resolved]
  - Liver injury [Unknown]
